FAERS Safety Report 6730503-6 (Version None)
Quarter: 2010Q2

REPORT INFORMATION
  Report Type: 
  Country: None (occurrence: None)
  Receive Date: 20100514
  Receipt Date: 20100505
  Transmission Date: 20101027
  Serious: Yes (Life-Threatening)
  Sender: FDA-Public Use
  Company Number: GER/USA/10/0012722

PATIENT
  Age: 19 Year
  Sex: Male

DRUGS (2)
  1. IBUPROFEN [Suspect]
     Indication: DRUG USE FOR UNKNOWN INDICATION
     Dosage: 90 GM,  1 IN 1 TOTAL, ORAL
     Route: 048
  2. ETHANOL (ETHANOL [Suspect]
     Indication: DRUG USE FOR UNKNOWN INDICATION
     Dosage: 1180 ML, 1 IN 1 TOTAL, ORAL
     Route: 048

REACTIONS (13)
  - ALCOHOL USE [None]
  - BLOOD POTASSIUM DECREASED [None]
  - COMA [None]
  - HYPOTHERMIA [None]
  - INTENTIONAL OVERDOSE [None]
  - LACTIC ACIDOSIS [None]
  - METABOLIC ACIDOSIS [None]
  - MUSCLE CONTRACTIONS INVOLUNTARY [None]
  - MUSCLE TWITCHING [None]
  - OLIGURIA [None]
  - POLYURIA [None]
  - RENAL TUBULAR NECROSIS [None]
  - SINUS TACHYCARDIA [None]
